FAERS Safety Report 4963271-9 (Version None)
Quarter: 2006Q2

REPORT INFORMATION
  Report Type: 
  Country: None (occurrence: None)
  Receive Date: 20060404
  Receipt Date: 20060404
  Transmission Date: 20061013
  Serious: Yes (Life-Threatening, Hospitalization, Disabling)
  Sender: FDA-Public Use
  Company Number: None

PATIENT
  Age: 50 Year
  Sex: Male
  Weight: 108.8633 kg

DRUGS (1)
  1. LIPITOR [Suspect]
     Indication: BLOOD CHOLESTEROL INCREASED
     Dosage: 20 MG    1 PER DAY   PO
     Route: 048
     Dates: start: 20020101, end: 20030530

REACTIONS (7)
  - COMPARTMENT SYNDROME [None]
  - DRUG DEPENDENCE [None]
  - MUSCLE DISORDER [None]
  - MYALGIA [None]
  - PAIN [None]
  - PARALYSIS [None]
  - RHABDOMYOLYSIS [None]
